FAERS Safety Report 16904804 (Version 1)
Quarter: 2019Q4

REPORT INFORMATION
  Report Type: Spontaneous
  Country: US (occurrence: US)
  Receive Date: 20191010
  Receipt Date: 20191010
  Transmission Date: 20200122
  Serious: Yes (Hospitalization)
  Sender: FDA-Public Use
  Company Number: None

PATIENT
  Sex: Female

DRUGS (10)
  1. PAROXETINE. [Concomitant]
     Active Substance: PAROXETINE
  2. HUMIRA [Suspect]
     Active Substance: ADALIMUMAB
     Indication: COLITIS ULCERATIVE
     Dosage: ?          OTHER FREQUENCY:Q 2WKS;?
     Route: 058
     Dates: start: 20180427
  3. OMEGA-3 ACIDS [Concomitant]
     Active Substance: OMEGA-3 FATTY ACIDS
  4. AMLODIPINE [Concomitant]
     Active Substance: AMLODIPINE BESYLATE
  5. TYLENOL [Concomitant]
     Active Substance: ACETAMINOPHEN
  6. AZELASTINE. [Concomitant]
     Active Substance: AZELASTINE HYDROCHLORIDE
  7. FLUTICASONE. [Concomitant]
     Active Substance: FLUTICASONE
  8. CYANICOBALAM [Concomitant]
  9. EZETIMIBE. [Concomitant]
     Active Substance: EZETIMIBE
  10. OLMESA MEDOX [Concomitant]

REACTIONS (1)
  - Transient ischaemic attack [None]
